FAERS Safety Report 10728186 (Version 1)
Quarter: 2015Q1

REPORT INFORMATION
  Report Type: Spontaneous
  Country: US (occurrence: US)
  Receive Date: 20150121
  Receipt Date: 20150121
  Transmission Date: 20150721
  Serious: No
  Sender: FDA-Public Use
  Company Number: US-MYLANLABS-2014S1001845

PATIENT
  Sex: Female
  Weight: 52.16 kg

DRUGS (1)
  1. BALSALAZIDE [Suspect]
     Active Substance: BALSALAZIDE
     Indication: COLITIS ULCERATIVE
     Dosage: 2250 MG,TID
     Route: 048

REACTIONS (2)
  - Colitis ulcerative [Recovered/Resolved]
  - Drug effect decreased [Recovered/Resolved]
